FAERS Safety Report 13439623 (Version 1)
Quarter: 2017Q2

REPORT INFORMATION
  Report Type: Spontaneous
  Country: US (occurrence: US)
  Receive Date: 20170413
  Receipt Date: 20170413
  Transmission Date: 20170830
  Serious: Yes (Other)
  Sender: FDA-Public Use
  Company Number: US-BAYER-2017-065877

PATIENT
  Age: 66 Year
  Sex: Female
  Weight: 86 kg

DRUGS (4)
  1. BAYER LOW DOSE [Suspect]
     Active Substance: ASPIRIN
     Indication: PROPHYLAXIS
     Dosage: 1 DF, QD
     Route: 048
  2. CENTRUM SILVER [Concomitant]
     Active Substance: MINERALS\VITAMINS
  3. ONE-A-DAY NOS [Suspect]
     Active Substance: MINERALS\VITAMINS
     Dosage: 1 DF, OM
     Route: 048
     Dates: end: 20170404
  4. CHROMIUN [Concomitant]

REACTIONS (2)
  - Atrial fibrillation [Recovered/Resolved]
  - Therapeutic response unexpected [Unknown]

NARRATIVE: CASE EVENT DATE: 201702
